FAERS Safety Report 11784708 (Version 1)
Quarter: 2015Q4

REPORT INFORMATION
  Report Type: Spontaneous
  Country: GB (occurrence: GB)
  Receive Date: 20151130
  Receipt Date: 20151130
  Transmission Date: 20160305
  Serious: Yes (Hospitalization)
  Sender: FDA-Public Use
  Company Number: GB-DEXPHARM-20152272

PATIENT
  Age: 86 Year
  Sex: Female

DRUGS (7)
  1. CYCLIZINE [Concomitant]
     Active Substance: CYCLIZINE
  2. COLECALCIFEROL [Concomitant]
     Active Substance: CHOLECALCIFEROL
  3. DIGOXIN. [Concomitant]
     Active Substance: DIGOXIN
  4. INDAPAMIDE. [Concomitant]
     Active Substance: INDAPAMIDE
  5. PARACETAMOL [Suspect]
     Active Substance: ACETAMINOPHEN
     Dosage: SUSPENDED ON ADMISSION.
  6. PERINDOPRIL [Concomitant]
     Active Substance: PERINDOPRIL
  7. OMEPRAZOLE. [Suspect]
     Active Substance: OMEPRAZOLE
     Route: 048

REACTIONS (2)
  - Jaundice [Recovering/Resolving]
  - Liver function test abnormal [Unknown]
